FAERS Safety Report 9119379 (Version 1)
Quarter: 2013Q1

REPORT INFORMATION
  Report Type: Spontaneous
  Country: US (occurrence: US)
  Receive Date: 20130207
  Receipt Date: 20130207
  Transmission Date: 20140127
  Serious: Yes (Other)
  Sender: FDA-Public Use
  Company Number: US-COVIDIEN/TYCO HEALTHCARE/MALLINCKRODT-T201300771

PATIENT
  Sex: Female
  Weight: 52.15 kg

DRUGS (4)
  1. METHADONE [Suspect]
     Indication: DRUG DEPENDENCE
     Dosage: 55 MG, UNK
     Dates: start: 201208
  2. METHADONE [Suspect]
     Dosage: 35 MG, UNK
     Route: 048
     Dates: start: 201301
  3. METHADOSE [Concomitant]
     Indication: DRUG DEPENDENCE
     Dosage: 65 MG QD
     Route: 048
     Dates: start: 20120716, end: 20120725
  4. METHADOSE [Concomitant]
     Dosage: 60 MG QD
     Route: 048
     Dates: start: 20120725

REACTIONS (3)
  - Pancreatitis [Not Recovered/Not Resolved]
  - Weight decreased [Not Recovered/Not Resolved]
  - Withdrawal syndrome [Unknown]
